FAERS Safety Report 21478106 (Version 11)
Quarter: 2023Q1

REPORT INFORMATION
  Report Type: Spontaneous
  Country: US (occurrence: US)
  Receive Date: 20221019
  Receipt Date: 20230119
  Transmission Date: 20230418
  Serious: Yes (Hospitalization)
  Sender: FDA-Public Use
  Company Number: US-VERTEX PHARMACEUTICALS-2022-015283

PATIENT
  Sex: Female
  Weight: 80 kg

DRUGS (5)
  1. TRIKAFTA [Suspect]
     Active Substance: ELEXACAFTOR\IVACAFTOR\TEZACAFTOR
     Indication: Cystic fibrosis
     Dosage: FULL DOSE
     Route: 048
     Dates: start: 20191107
  2. TRIKAFTA [Suspect]
     Active Substance: ELEXACAFTOR\IVACAFTOR\TEZACAFTOR
     Dosage: FLIPPED DOSE
     Route: 048
     Dates: start: 20210609, end: 2022
  3. TRIKAFTA [Suspect]
     Active Substance: ELEXACAFTOR\IVACAFTOR\TEZACAFTOR
     Dosage: 1 ORANGE AM TAB 1 DAY, NO PM DOSE; 1 BLUE TAB IN PM ON DAY 2; ALTERNATE DOSE
     Route: 048
     Dates: start: 202210, end: 2022
  4. TRIKAFTA [Suspect]
     Active Substance: ELEXACAFTOR\IVACAFTOR\TEZACAFTOR
     Dosage: ALTERNATE AM AND PM DOSE
     Route: 048
     Dates: start: 2022, end: 20221109
  5. TRIKAFTA [Suspect]
     Active Substance: ELEXACAFTOR\IVACAFTOR\TEZACAFTOR
     Dosage: FULL DOSE, FLIPPED BLUE TAB PM AND ORANGE TAB AM
     Route: 048
     Dates: start: 202211

REACTIONS (7)
  - Constipation [Recovered/Resolved]
  - Impaired gastric emptying [Not Recovered/Not Resolved]
  - Nausea [Not Recovered/Not Resolved]
  - Gastrointestinal bacterial overgrowth [Not Recovered/Not Resolved]
  - Abdominal pain upper [Not Recovered/Not Resolved]
  - Blood glucose abnormal [Recovered/Resolved]
  - Diaphragmatic hernia [Unknown]

NARRATIVE: CASE EVENT DATE: 20220101
